FAERS Safety Report 17090712 (Version 1)
Quarter: 2019Q4

REPORT INFORMATION
  Report Type: Spontaneous
  Country: US (occurrence: US)
  Receive Date: 20191129
  Receipt Date: 20191129
  Transmission Date: 20200122
  Serious: No
  Sender: FDA-Public Use
  Company Number: US-SHIRE-US201936843

PATIENT
  Age: 68 Year
  Sex: Female
  Weight: 181 kg

DRUGS (1)
  1. XIIDRA [Suspect]
     Active Substance: LIFITEGRAST
     Indication: PRODUCT USED FOR UNKNOWN INDICATION
     Dosage: 1 DROP, 2X/DAY:BID
     Route: 047

REACTIONS (5)
  - Eye pain [Unknown]
  - Inability to afford medication [Unknown]
  - Dry eye [Unknown]
  - Prescription drug used without a prescription [Unknown]
  - Product use issue [Unknown]

NARRATIVE: CASE EVENT DATE: 20190930
